FAERS Safety Report 7956964-2 (Version None)
Quarter: 2011Q4

REPORT INFORMATION
  Report Type: 
  Country: None (occurrence: None)
  Receive Date: 20111205
  Receipt Date: 20111018
  Transmission Date: 20120403
  Serious: No
  Sender: FDA-Public Use
  Company Number: US-BAYER-2011-102396

PATIENT
  Age: 61 Year
  Sex: Female
  Weight: 68 kg

DRUGS (2)
  1. NAPROXEN (ALEVE) [Suspect]
     Indication: BACK PAIN
     Dosage: 1 DF, BID (SMOOTH GELLS) 40S
     Route: 048
     Dates: start: 20111012, end: 20111016
  2. LISINOPRIL [Concomitant]

REACTIONS (2)
  - EPISTAXIS [None]
  - BACK PAIN [None]
